FAERS Safety Report 10445205 (Version 2)
Quarter: 2014Q3

REPORT INFORMATION
  Report Type: Spontaneous
  Country: IT (occurrence: IT)
  Receive Date: 20140910
  Receipt Date: 20140910
  Transmission Date: 20150326
  Serious: Yes (Other)
  Sender: FDA-Public Use
  Company Number: PHHY2014IT100303

PATIENT
  Age: 46 Year
  Sex: Male

DRUGS (6)
  1. DEPAKIN [Suspect]
     Active Substance: VALPROATE SODIUM
     Dosage: 500 MG, UNK
     Route: 048
     Dates: start: 20140430, end: 20140430
  2. METOPROLOL [Suspect]
     Active Substance: METOPROLOL
     Route: 048
     Dates: start: 20140430, end: 20140430
  3. INVEGA [Suspect]
     Active Substance: PALIPERIDONE
     Dosage: 3 MG, UNK
     Route: 048
  4. CAMPRAL [Suspect]
     Active Substance: ACAMPROSATE CALCIUM
     Dosage: 333 MG, UNK
     Route: 048
     Dates: start: 20140430, end: 20140430
  5. LASITONE [Suspect]
     Active Substance: FUROSEMIDE\SPIRONOLACTONE
     Route: 048
     Dates: start: 20140430, end: 20140430
  6. BROMAZEPAM [Suspect]
     Active Substance: BROMAZEPAM
     Route: 048
     Dates: start: 20140430, end: 20140430

REACTIONS (1)
  - Self injurious behaviour [Unknown]

NARRATIVE: CASE EVENT DATE: 20140430
